FAERS Safety Report 6050114-8 (Version None)
Quarter: 2009Q1

REPORT INFORMATION
  Report Type: 
  Country: None (occurrence: None)
  Receive Date: 20090121
  Receipt Date: 20090113
  Transmission Date: 20090719
  Serious: Yes (Death, Hospitalization)
  Sender: FDA-Public Use
  Company Number: 2009-00144

PATIENT
  Age: 47 Year
  Sex: Male

DRUGS (12)
  1. VELCADE [Suspect]
     Indication: MULTIPLE MYELOMA
     Dates: start: 20080101
  2. DEXAMETHASONE TAB [Suspect]
     Indication: MULTIPLE MYELOMA
  3. DOXIL [Suspect]
  4. CORTICOSTEROIDS [Suspect]
     Indication: MULTIPLE MYELOMA
  5. FAMOTIDINE [Concomitant]
  6. OXYCONTIN [Concomitant]
  7. OXYCODONE HCL [Concomitant]
  8. FENTANYL-100 [Concomitant]
  9. CIPROFLOXACIN [Concomitant]
  10. LOVENOX [Concomitant]
  11. LIPITOR [Concomitant]
  12. PROZAC [Concomitant]

REACTIONS (5)
  - BACTERAEMIA [None]
  - ESCHERICHIA INFECTION [None]
  - MALIGNANT NEOPLASM PROGRESSION [None]
  - MENINGITIS [None]
  - PNEUMONIA STREPTOCOCCAL [None]
